FAERS Safety Report 8810850 (Version 1)
Quarter: 2012Q4

REPORT INFORMATION
  Report Type: Spontaneous
  Country: US (occurrence: None)
  Receive Date: 20120924
  Receipt Date: 20120924
  Transmission Date: 20130627
  Serious: Yes (Other)
  Sender: FDA-Public Use
  Company Number: None

PATIENT
  Age: 90 Year
  Sex: Female
  Weight: 54.89 kg

DRUGS (1)
  1. AZITHROMYCIN [Suspect]

REACTIONS (2)
  - Myoclonus [None]
  - Choreoathetosis [None]
